FAERS Safety Report 9563494 (Version 1)
Quarter: 2013Q3

REPORT INFORMATION
  Report Type: Spontaneous
  Country: US (occurrence: None)
  Receive Date: 20130926
  Receipt Date: 20130926
  Transmission Date: 20140515
  Serious: Yes (Life-Threatening, Hospitalization, Disabling)
  Sender: FDA-Public Use
  Company Number: None

PATIENT
  Age: 32 Year
  Sex: Male
  Weight: 103.87 kg

DRUGS (1)
  1. TRAMADOL [Suspect]
     Indication: ARTHRALGIA
     Dosage: 1 OR 2
     Route: 048
     Dates: start: 20080801, end: 20080925

REACTIONS (9)
  - Convulsion [None]
  - Joint dislocation [None]
  - Nerve injury [None]
  - Asthenia [None]
  - Muscle atrophy [None]
  - Neuropathy peripheral [None]
  - Fracture displacement [None]
  - Activities of daily living impaired [None]
  - Humerus fracture [None]
